FAERS Safety Report 12235389 (Version 8)
Quarter: 2017Q1

REPORT INFORMATION
  Report Type: Report from Study
  Country: US (occurrence: US)
  Receive Date: 20160404
  Receipt Date: 20170201
  Transmission Date: 20170428
  Serious: No
  Sender: FDA-Public Use
  Company Number: PHHY2015US080324

PATIENT
  Age: 29 Year
  Sex: Female

DRUGS (1)
  1. GILENYA [Suspect]
     Active Substance: FINGOLIMOD HYDROCHLORIDE
     Indication: MULTIPLE SCLEROSIS
     Dosage: UNK
     Route: 048

REACTIONS (24)
  - Diarrhoea [Recovered/Resolved]
  - Anxiety [Not Recovered/Not Resolved]
  - Dizziness [Not Recovered/Not Resolved]
  - Neuralgia [Not Recovered/Not Resolved]
  - Blood calcium decreased [Unknown]
  - White blood cell count decreased [Unknown]
  - Tonsillitis [Recovered/Resolved]
  - Gait disturbance [Not Recovered/Not Resolved]
  - Hypersensitivity [Recovered/Resolved]
  - Hypertension [Not Recovered/Not Resolved]
  - Bladder dysfunction [Not Recovered/Not Resolved]
  - Vitamin D deficiency [Not Recovered/Not Resolved]
  - Functional gastrointestinal disorder [Not Recovered/Not Resolved]
  - Fall [Recovered/Resolved]
  - Foot fracture [Recovered/Resolved]
  - Allergy to chemicals [Recovered/Resolved]
  - Alanine aminotransferase increased [Unknown]
  - Ligament sprain [Recovered/Resolved]
  - Contusion [Recovered/Resolved]
  - Blood alkaline phosphatase increased [Unknown]
  - Insomnia [Not Recovered/Not Resolved]
  - Muscle spasticity [Not Recovered/Not Resolved]
  - Aspartate aminotransferase increased [Unknown]
  - Alopecia [Recovered/Resolved]

NARRATIVE: CASE EVENT DATE: 20141015
